FAERS Safety Report 20170519 (Version 11)
Quarter: 2022Q1

REPORT INFORMATION
  Report Type: Spontaneous
  Country: DE (occurrence: DE)
  Receive Date: 20211210
  Receipt Date: 20220322
  Transmission Date: 20220424
  Serious: Yes (Hospitalization)
  Sender: FDA-Public Use
  Company Number: DE-LESVI-2021000602

PATIENT
  Age: 82 Year
  Sex: Female

DRUGS (12)
  1. MIRTAZAPINE [Suspect]
     Active Substance: MIRTAZAPINE
     Indication: Psychotic symptom
     Dosage: 30 MG/DAY
     Route: 048
  2. MIRTAZAPINE [Suspect]
     Active Substance: MIRTAZAPINE
     Indication: Depressive symptom
  3. OLANZAPINE [Suspect]
     Active Substance: OLANZAPINE
     Indication: Psychotic symptom
     Dosage: 10 MG/DAY
  4. OLANZAPINE [Suspect]
     Active Substance: OLANZAPINE
     Indication: Depressive symptom
     Dosage: 15 MG/DAY
  5. LEVOTHYROXINE [Concomitant]
     Active Substance: LEVOTHYROXINE
     Dosage: 62.5 PG/DAY
  6. PANTOPRAZOLE [Concomitant]
     Active Substance: PANTOPRAZOLE
     Dosage: 20 MG/DAY
  7. CANDESARTAN [Concomitant]
     Active Substance: CANDESARTAN
     Dosage: 16 MG/DAY
  8. METAMIZOLE [Concomitant]
     Active Substance: METAMIZOLE
     Dosage: 2 X 500 MG/DAY
  9. IBUPROFEN [Concomitant]
     Active Substance: IBUPROFEN
     Dosage: 3 X 200 MG/DAY
  10. CHOLECALCIFEROL [Concomitant]
     Active Substance: CHOLECALCIFEROL
     Dosage: 1.000 IU/DAY
  11. URSODIOL [Concomitant]
     Active Substance: URSODIOL
     Dosage: 500 MG/DAY
  12. ALENDRONIC ACID [Concomitant]
     Active Substance: ALENDRONIC ACID
     Dosage: 70 MG/WEEK

REACTIONS (1)
  - Therapeutic product effect decreased [Unknown]
